FAERS Safety Report 6058260-X (Version None)
Quarter: 2009Q1

REPORT INFORMATION
  Report Type: 
  Country: None (occurrence: None)
  Receive Date: 20090128
  Receipt Date: 20090128
  Transmission Date: 20090719
  Serious: Yes (Hospitalization)
  Sender: FDA-Public Use
  Company Number: None

PATIENT
  Sex: Female
  Weight: 92.4 kg

DRUGS (18)
  1. PRISTIQ [Suspect]
     Indication: DEPRESSION
     Dosage: 50 MG DAILY PO
     Route: 048
     Dates: start: 20090123
  2. EFFEXOR XR [Suspect]
     Indication: DEPRESSION
     Dosage: 150 MG DAILY PO } 4 MONTHS
     Route: 048
  3. ABILIFY [Concomitant]
  4. NEURONTIN [Concomitant]
  5. SINGULAIR [Concomitant]
  6. SYNTHROID [Concomitant]
  7. TRAZODONE HCL [Concomitant]
  8. MOTRIN [Concomitant]
  9. VERAPAMIL EXTENDED-RELEASE [Concomitant]
  10. ASPIRIN [Concomitant]
  11. TEGRETOL [Concomitant]
  12. VALIUM [Concomitant]
  13. ZYPREXA [Concomitant]
  14. FOLIC ACID [Concomitant]
  15. SPIRIVA [Concomitant]
  16. ALBUTEROL SULATE [Concomitant]
  17. ADVAIR DISKUS 100/50 [Concomitant]
  18. PREVACID [Concomitant]

REACTIONS (1)
  - GRAND MAL CONVULSION [None]
